FAERS Safety Report 14967108 (Version 1)
Quarter: 2018Q2

REPORT INFORMATION
  Report Type: Spontaneous
  Country: US (occurrence: US)
  Receive Date: 20180604
  Receipt Date: 20180604
  Transmission Date: 20180711
  Serious: Yes (Death, Life-Threatening, Other)
  Sender: FDA-Public Use
  Company Number: US-CHEPLA-C20170291

PATIENT
  Age: 83 Year
  Sex: Female

DRUGS (5)
  1. ARSENIC TRIOXIDE (ATO) [Suspect]
     Active Substance: ARSENIC TRIOXIDE
  2. ALL-TRANS RETINOIC ACID (ATRA) [Suspect]
     Active Substance: TRETINOIN
     Indication: ACUTE PROMYELOCYTIC LEUKAEMIA
  3. FUROSEMIDE. [Suspect]
     Active Substance: FUROSEMIDE
     Indication: PULMONARY OEDEMA
  4. DEXAMETHASONE. [Suspect]
     Active Substance: DEXAMETHASONE
     Indication: ACUTE PROMYELOCYTIC LEUKAEMIA DIFFERENTIATION SYNDROME
  5. MEROPENEM. [Suspect]
     Active Substance: MEROPENEM
     Indication: PULMONARY OEDEMA

REACTIONS (4)
  - Pneumonia [Unknown]
  - Coagulopathy [Unknown]
  - Acute myocardial infarction [Fatal]
  - Acute promyelocytic leukaemia differentiation syndrome [Unknown]
